FAERS Safety Report 7039037-5 (Version None)
Quarter: 2010Q4

REPORT INFORMATION
  Report Type: 
  Country: None (occurrence: None)
  Receive Date: 20101012
  Receipt Date: 20100930
  Transmission Date: 20110411
  Serious: Yes (Hospitalization, Other)
  Sender: FDA-Public Use
  Company Number: ES-ELI_LILLY_AND_COMPANY-ES201010000661

PATIENT
  Sex: Male
  Weight: 58 kg

DRUGS (8)
  1. FORTEO [Suspect]
     Indication: OSTEOPOROSIS
     Dosage: 20 UG, DAILY (1/D)
     Route: 058
     Dates: start: 20100701
  2. MASTICAL D [Concomitant]
     Indication: OSTEOPOROSIS
     Dosage: 2 C/24HR, UNK
     Route: 048
  3. ACETILCISTEINA [Concomitant]
     Indication: RESPIRATORY DISORDER
     Dosage: 1C/24HR, UNK
     Route: 048
  4. SUTRIL [Concomitant]
     Indication: DIURETIC THERAPY
     Dosage: 1C/24HR, UNK
     Route: 048
  5. MASDIL [Concomitant]
     Indication: HYPERTENSION
     Dosage: 3C/24HR, UNK
     Route: 048
  6. BOI K [Concomitant]
     Dosage: 1C/24HR, UNK
     Route: 048
  7. SPIRIVA [Concomitant]
     Dosage: 1INH C/24HR, UNK
     Route: 048
  8. ZAMENE [Concomitant]
     Indication: RESPIRATORY DISORDER
     Dosage: 1C/24HR, UNK
     Route: 048
     Dates: end: 20100922

REACTIONS (3)
  - BLOOD GLUCOSE INCREASED [None]
  - MALAISE [None]
  - RESPIRATORY DISORDER [None]
